FAERS Safety Report 6838285-4 (Version None)
Quarter: 2010Q3

REPORT INFORMATION
  Report Type: 
  Country: None (occurrence: None)
  Receive Date: 20100713
  Receipt Date: 20070604
  Transmission Date: 20110219
  Serious: No
  Sender: FDA-Public Use
  Company Number: US-PFIZER INC-2007047416

PATIENT
  Sex: Female
  Weight: 104.54 kg

DRUGS (9)
  1. CHANTIX [Suspect]
     Indication: SMOKING CESSATION THERAPY
     Dates: start: 20070301, end: 20070501
  2. METFORMIN [Concomitant]
  3. LIPITOR [Concomitant]
  4. TOPROL-XL [Concomitant]
  5. PRILOSEC [Concomitant]
  6. ZYRTEC [Concomitant]
  7. CELEXA [Concomitant]
  8. ACETYLSALICYLIC ACID [Concomitant]
  9. ANAPROX [Concomitant]

REACTIONS (2)
  - POLLAKIURIA [None]
  - SLEEP DISORDER [None]
